FAERS Safety Report 6023025-1 (Version None)
Quarter: 2008Q4

REPORT INFORMATION
  Report Type: 
  Country: None (occurrence: None)
  Receive Date: 20081230
  Receipt Date: 20081222
  Transmission Date: 20090506
  Serious: Yes (Hospitalization)
  Sender: FDA-Public Use
  Company Number: US-ASTRAZENECA-2008UW28665

PATIENT
  Age: 8 Year
  Sex: Male

DRUGS (3)
  1. SEROQUEL [Suspect]
     Route: 048
  2. ISONIAZID [Concomitant]
     Route: 055
  3. ABILIFY [Concomitant]

REACTIONS (1)
  - ADVERSE DRUG REACTION [None]
